FAERS Safety Report 18987914 (Version 1)
Quarter: 2021Q1

REPORT INFORMATION
  Report Type: Spontaneous
  Country: US (occurrence: US)
  Receive Date: 20210309
  Receipt Date: 20210309
  Transmission Date: 20210420
  Serious: No
  Sender: FDA-Public Use
  Company Number: US-BAYER-2021-101410

PATIENT
  Age: 74 Year
  Sex: Female

DRUGS (3)
  1. MIRALAX [Suspect]
     Active Substance: POLYETHYLENE GLYCOL 3350
     Indication: COLITIS
  2. MIRALAX [Suspect]
     Active Substance: POLYETHYLENE GLYCOL 3350
     Indication: COLONOSCOPY
     Dosage: 1 DF, TIW
     Route: 048
     Dates: start: 1991, end: 202102
  3. URSODIOL. [Concomitant]
     Active Substance: URSODIOL

REACTIONS (3)
  - Product use in unapproved indication [None]
  - Off label use [Unknown]
  - Product container seal issue [None]
